FAERS Safety Report 10174468 (Version 4)
Quarter: 2014Q3

REPORT INFORMATION
  Report Type: Spontaneous
  Country: US (occurrence: US)
  Receive Date: 20140515
  Receipt Date: 20140904
  Transmission Date: 20150326
  Serious: Yes (Hospitalization, Other)
  Sender: FDA-Public Use
  Company Number: US-GILEAD-2014-0102344

PATIENT
  Age: 85 Year
  Sex: Female

DRUGS (5)
  1. LANOXIN [Suspect]
     Active Substance: DIGOXIN
     Indication: PRODUCT USED FOR UNKNOWN INDICATION
     Route: 065
  2. ADEMPAS [Concomitant]
     Active Substance: RIOCIGUAT
  3. ATENOLOL. [Suspect]
     Active Substance: ATENOLOL
     Indication: PRODUCT USED FOR UNKNOWN INDICATION
     Route: 065
  4. LETAIRIS [Suspect]
     Active Substance: AMBRISENTAN
     Indication: PRODUCT USED FOR UNKNOWN INDICATION
     Dosage: 10 MG, QD
     Route: 065
     Dates: start: 20130205
  5. COUMADIN [Suspect]
     Active Substance: WARFARIN SODIUM
     Indication: BACK PAIN
     Route: 065

REACTIONS (10)
  - Anaemia [Unknown]
  - Hyperkalaemia [Unknown]
  - Gastrointestinal haemorrhage [Unknown]
  - Blood pressure abnormal [Unknown]
  - Dizziness [Unknown]
  - Weight increased [Unknown]
  - Renal failure [Unknown]
  - Gastric ulcer [Unknown]
  - Headache [Unknown]
  - Toxicity to various agents [Unknown]
